FAERS Safety Report 23477202 (Version 1)
Quarter: 2024Q1

REPORT INFORMATION
  Report Type: Report from Study
  Country: BR (occurrence: BR)
  Receive Date: 20240204
  Receipt Date: 20240204
  Transmission Date: 20240410
  Serious: No
  Sender: FDA-Public Use
  Company Number: BR-IPSEN Group, Research and Development-2023-20413

PATIENT
  Sex: Female
  Weight: 50 kg

DRUGS (4)
  1. CABOMETYX [Suspect]
     Active Substance: CABOZANTINIB S-MALATE
     Indication: Thyroid cancer
     Dosage: 20 MG, QD
     Route: 048
     Dates: start: 2023, end: 20230824
  2. SPIRONOLACTONE [Concomitant]
     Active Substance: SPIRONOLACTONE
     Dosage: 25 MG, ORAL
     Route: 048
  3. SYNTHROID [Concomitant]
     Active Substance: LEVOTHYROXINE SODIUM
     Dosage: 100 MG, ORAL
     Route: 048
  4. OMEPRAZOLE [Concomitant]
     Active Substance: OMEPRAZOLE
     Dosage: 100 MG, DAILY
     Route: 048

REACTIONS (5)
  - Oropharyngeal pain [Unknown]
  - Dysphagia [Unknown]
  - Peripheral coldness [Unknown]
  - Muscle spasms [Unknown]
  - Fatigue [Unknown]
